FAERS Safety Report 22232202 (Version 1)
Quarter: 2023Q2

REPORT INFORMATION
  Report Type: Spontaneous
  Country: US (occurrence: None)
  Receive Date: 20230420
  Receipt Date: 20230420
  Transmission Date: 20230721
  Serious: No
  Sender: FDA-Public Use
  Company Number: US-ROCHE-3036261

PATIENT
  Sex: Female

DRUGS (7)
  1. ESBRIET [Suspect]
     Active Substance: PIRFENIDONE
     Indication: Idiopathic pulmonary fibrosis
     Route: 048
  2. DULOXETINE [Concomitant]
     Active Substance: DULOXETINE
  3. FOSINOPRIL [Concomitant]
     Active Substance: FOSINOPRIL
  4. LEVOTHYROXINE [Concomitant]
     Active Substance: LEVOTHYROXINE
  5. PRAVASTATIN [Concomitant]
     Active Substance: PRAVASTATIN
  6. TIZANIDINE [Concomitant]
     Active Substance: TIZANIDINE
  7. WARFARIN SODIUM [Concomitant]
     Active Substance: WARFARIN SODIUM

REACTIONS (1)
  - Nausea [Unknown]
